FAERS Safety Report 9130734 (Version 1)
Quarter: 2013Q1

REPORT INFORMATION
  Report Type: Spontaneous
  Country: US (occurrence: US)
  Receive Date: 20130301
  Receipt Date: 20130301
  Transmission Date: 20140127
  Serious: Yes (Other)
  Sender: FDA-Public Use
  Company Number: PHHY2013US019651

PATIENT
  Sex: Male

DRUGS (14)
  1. GILENYA [Suspect]
     Indication: RELAPSING-REMITTING MULTIPLE SCLEROSIS
     Dosage: 0.5 MG, QD
     Route: 048
     Dates: start: 201102
  2. GILENYA [Suspect]
     Dosage: 0.5 MG, QD
     Route: 048
     Dates: start: 20110429
  3. GILENYA [Suspect]
     Dosage: 0.5 MG, QD
     Route: 048
     Dates: start: 20110717
  4. LIPITOR [Concomitant]
     Dosage: 10 MG, QD
  5. TIZANIDINE [Concomitant]
     Indication: MUSCLE SPASMS
     Dosage: 4 MG, PRN
  6. CIALIS [Concomitant]
     Dosage: 5 MG, QD
  7. MULTIVITAMINS [Concomitant]
  8. POLYETHYLENE GLYCOL 3350 [Concomitant]
     Dosage: 1 TSP, QD
  9. NSAID^S [Concomitant]
  10. LYRICA [Concomitant]
     Dosage: 75 MG, UNK
  11. OXYCODONE [Concomitant]
     Dosage: 5 MG, UNK
  12. VITAMIN D3 [Concomitant]
     Dosage: 5000 U, UNK
  13. FISH OIL [Concomitant]
     Dosage: 1200 MG, UNK
  14. ECHINACEA [Concomitant]
     Dosage: 500 MG, UNK

REACTIONS (1)
  - Injury [Recovering/Resolving]
